FAERS Safety Report 13668875 (Version 1)
Quarter: 2017Q2

REPORT INFORMATION
  Report Type: Spontaneous
  Country: US (occurrence: US)
  Receive Date: 20170620
  Receipt Date: 20170620
  Transmission Date: 20170830
  Serious: Yes (Hospitalization)
  Sender: FDA-Public Use
  Company Number: None

PATIENT
  Age: 69 Year
  Sex: Female

DRUGS (8)
  1. LEVOTHY [Concomitant]
  2. ASPIRIN. [Concomitant]
     Active Substance: ASPIRIN
  3. TORSEMIDE. [Concomitant]
     Active Substance: TORSEMIDE
  4. SPIRONOLACT [Concomitant]
  5. POLY IRON [Concomitant]
     Active Substance: DIETARY SUPPLEMENT
  6. PROCRIT [Suspect]
     Active Substance: ERYTHROPOIETIN
     Indication: OSTEOARTHRITIS
     Route: 058
     Dates: start: 20161013
  7. JANUVIA [Concomitant]
     Active Substance: SITAGLIPTIN PHOSPHATE
  8. WARFARIN [Concomitant]
     Active Substance: WARFARIN

REACTIONS (2)
  - Cyst [None]
  - Diverticulitis [None]
